FAERS Safety Report 9443356 (Version 2)
Quarter: 2013Q3

REPORT INFORMATION
  Report Type: Spontaneous
  Country: US (occurrence: None)
  Receive Date: 20130802
  Receipt Date: 20130903
  Transmission Date: 20140515
  Serious: Yes (Hospitalization, Other)
  Sender: FDA-Public Use
  Company Number: ACO_37677_2013

PATIENT
  Age: 58 Year
  Sex: Male

DRUGS (7)
  1. AMPYRA [Suspect]
     Indication: PRODUCT USED FOR UNKNOWN INDICATION
     Dates: start: 2010
  2. COPAXONE (GLATIRAMER ACETATE) [Concomitant]
  3. AMLODIPINE BESYLATE [Concomitant]
  4. LISINOPRIL [Concomitant]
  5. LEVOTHYROXINE SODIUM [Concomitant]
  6. TAMSULOSIN HYDROCHLORIDE [Concomitant]
  7. HYDROCODONE (HYDROCODONE BITARTRATE) [Concomitant]

REACTIONS (4)
  - Myocardial infarction [None]
  - Coronary artery occlusion [None]
  - Arthropathy [None]
  - Microvascular coronary artery disease [None]
